FAERS Safety Report 25526304 (Version 1)
Quarter: 2025Q3

REPORT INFORMATION
  Report Type: Spontaneous
  Country: TW (occurrence: TW)
  Receive Date: 20250707
  Receipt Date: 20250707
  Transmission Date: 20251021
  Serious: Yes (Death, Hospitalization, Other)
  Sender: AMGEN
  Company Number: TW-AMGEN-TWNSP2025129513

PATIENT

DRUGS (2)
  1. EVOLOCUMAB [Suspect]
     Active Substance: EVOLOCUMAB
     Indication: Coronary artery disease
     Route: 065
  2. EVOLOCUMAB [Suspect]
     Active Substance: EVOLOCUMAB
     Indication: Generalised anxiety disorder

REACTIONS (6)
  - Death [Fatal]
  - Cardiovascular disorder [Unknown]
  - Cerebral infarction [Unknown]
  - Acute myocardial infarction [Unknown]
  - Unevaluable event [Unknown]
  - Skin cancer [Unknown]
